FAERS Safety Report 9133936 (Version 1)
Quarter: 2013Q1

REPORT INFORMATION
  Report Type: Spontaneous
  Country: US (occurrence: US)
  Receive Date: 20130303
  Receipt Date: 20130303
  Transmission Date: 20140127
  Serious: Yes (Other)
  Sender: FDA-Public Use
  Company Number: US-AMGEN-USASP2012053989

PATIENT
  Age: 53 Year
  Sex: Female

DRUGS (10)
  1. ENBREL [Suspect]
     Indication: PRODUCT USED FOR UNKNOWN INDICATION
     Dosage: 50 MG, QWK
     Route: 058
  2. METHOTREXATE [Concomitant]
     Dosage: 2.5 MG, UNK
  3. ESTRADIOL [Concomitant]
     Dosage: 1 MG, UNK
  4. ARMOUR THYROID [Concomitant]
     Dosage: 60 MG, UNK
  5. MAGNESIUM [Concomitant]
     Dosage: 200 MG, UNK
  6. CALCIUM [Concomitant]
     Dosage: 500 UNK, UNK
  7. VITAMIN C                          /00008001/ [Concomitant]
     Dosage: 500 MG, UNK
  8. FOLIC ACID [Concomitant]
     Dosage: UNK
  9. VITAMIN D /00107901/ [Concomitant]
     Dosage: 400 UNK, UNK
  10. VITAMINE E [Concomitant]
     Dosage: 1000 UNIT, UNK

REACTIONS (3)
  - Depression [Not Recovered/Not Resolved]
  - Injection site induration [Unknown]
  - Injection site reaction [Not Recovered/Not Resolved]
